FAERS Safety Report 4962116-0 (Version None)
Quarter: 2006Q2

REPORT INFORMATION
  Report Type: 
  Country: None (occurrence: None)
  Receive Date: 20060404
  Receipt Date: 20050519
  Transmission Date: 20061013
  Serious: Yes (Hospitalization)
  Sender: FDA-Public Use
  Company Number: US-MERCK-0505USA02328

PATIENT
  Age: 74 Year
  Sex: Female
  Weight: 68 kg

DRUGS (12)
  1. VIOXX [Suspect]
     Indication: ARTHRITIS
     Route: 048
     Dates: start: 20000822, end: 20000828
  2. ASPIRIN [Concomitant]
     Route: 065
  3. PEPCID [Concomitant]
     Route: 065
  4. METOPROLOL [Concomitant]
     Route: 065
  5. FLEXERIL [Concomitant]
     Route: 065
  6. FOSAMAX [Concomitant]
     Route: 065
  7. LIPITOR [Concomitant]
     Route: 065
  8. FOLIC ACID [Concomitant]
     Route: 065
  9. AZULFIDINE [Concomitant]
     Route: 065
  10. ERYTHROMYCIN [Concomitant]
     Route: 065
  11. AMBIEN [Concomitant]
     Route: 065
  12. MAGNESIA [MILK OF] [Concomitant]
     Route: 065

REACTIONS (25)
  - BACK PAIN [None]
  - BLOOD PRESSURE INCREASED [None]
  - CAROTID ARTERY STENOSIS [None]
  - CEREBROVASCULAR ACCIDENT [None]
  - CHOLECYSTITIS [None]
  - CHOLECYSTITIS ACUTE [None]
  - COMPRESSION FRACTURE [None]
  - CONTUSION [None]
  - COSTOCHONDRITIS [None]
  - DEHYDRATION [None]
  - DEMENTIA ALZHEIMER'S TYPE [None]
  - FAECALOMA [None]
  - FALL [None]
  - HYPERTENSION [None]
  - HYPONATRAEMIA [None]
  - MUSCULOSKELETAL CHEST PAIN [None]
  - MYOCARDIAL INFARCTION [None]
  - ONYCHOMYCOSIS [None]
  - ORGAN FAILURE [None]
  - PAIN [None]
  - PULMONARY EMBOLISM [None]
  - RADIUS FRACTURE [None]
  - RHINITIS ALLERGIC [None]
  - THROMBOSIS [None]
  - VOMITING [None]
